FAERS Safety Report 18220834 (Version 1)
Quarter: 2020Q3

REPORT INFORMATION
  Report Type: Spontaneous
  Country: NL (occurrence: NL)
  Receive Date: 20200902
  Receipt Date: 20200902
  Transmission Date: 20201103
  Serious: Yes (Other)
  Sender: FDA-Public Use
  Company Number: NL-AUROBINDO-AUR-APL-2020-046002

PATIENT
  Age: 77 Year
  Sex: Female

DRUGS (2)
  1. EZETIMIBE TABLETS [Suspect]
     Active Substance: EZETIMIBE
     Indication: PRODUCT USED FOR UNKNOWN INDICATION
     Dosage: UNK, 1 WEEK (BIW)
     Route: 065
     Dates: start: 2019, end: 202008
  2. PRALUENT [Suspect]
     Active Substance: ALIROCUMAB
     Indication: PRODUCT USED FOR UNKNOWN INDICATION
     Dosage: 75 MILLIGRAM, 2 WEEK (75 MG, QOW)
     Route: 065
     Dates: start: 2019

REACTIONS (9)
  - Sneezing [Not Recovered/Not Resolved]
  - Myocardial infarction [Unknown]
  - Night sweats [Not Recovered/Not Resolved]
  - Wrist fracture [Unknown]
  - Fatigue [Recovering/Resolving]
  - Condition aggravated [Unknown]
  - Rhinorrhoea [Unknown]
  - Pruritus [Unknown]
  - Hyperhidrosis [Unknown]

NARRATIVE: CASE EVENT DATE: 2019
